FAERS Safety Report 18208626 (Version 1)
Quarter: 2020Q3

REPORT INFORMATION
  Report Type: Report from Study
  Country: None (occurrence: US)
  Receive Date: 20200828
  Receipt Date: 20200828
  Transmission Date: 20201103
  Serious: Yes (Hospitalization)
  Sender: FDA-Public Use
  Company Number: US-ABBVIE-20K-163-3540208-00

PATIENT
  Sex: Male

DRUGS (1)
  1. VENCLEXTA [Suspect]
     Active Substance: VENETOCLAX
     Indication: ACUTE MYELOID LEUKAEMIA
     Dosage: WALLET CARD OF 5MG AND 50MG. 2MG ALONG WITH ONE 50MG FOR A TOTAL OF 70MG
     Route: 048
     Dates: start: 20200527, end: 2020

REACTIONS (1)
  - Stem cell transplant [Not Recovered/Not Resolved]

NARRATIVE: CASE EVENT DATE: 2020
